FAERS Safety Report 6886880-9 (Version None)
Quarter: 2010Q3

REPORT INFORMATION
  Report Type: 
  Country: None (occurrence: None)
  Receive Date: 20100730
  Receipt Date: 20100716
  Transmission Date: 20110219
  Serious: No
  Sender: FDA-Public Use
  Company Number: US-B.I. PHARMACEUTICALS,INC./RIDGEFIELD-2010-BP-08112BP

PATIENT
  Age: 74 Year
  Sex: Male

DRUGS (2)
  1. FLOMAX [Suspect]
     Indication: BENIGN PROSTATIC HYPERPLASIA
     Dosage: 0.4 MG
     Route: 048
     Dates: start: 20100401, end: 20100701
  2. PROSCAR [Concomitant]
     Indication: BENIGN PROSTATIC HYPERPLASIA

REACTIONS (1)
  - HEART RATE IRREGULAR [None]
